FAERS Safety Report 18410081 (Version 1)
Quarter: 2020Q4

REPORT INFORMATION
  Report Type: Report from Study
  Country: IN (occurrence: IN)
  Receive Date: 20201021
  Receipt Date: 20201021
  Transmission Date: 20210114
  Serious: Yes (Other)
  Sender: FDA-Public Use
  Company Number: NVSC2020IN279968

PATIENT
  Sex: Male

DRUGS (1)
  1. VYMADA [Suspect]
     Active Substance: SACUBITRIL\VALSARTAN
     Indication: CARDIAC FAILURE
     Dosage: 50 MG (1/2, BID)
     Route: 048
     Dates: start: 20200118, end: 20200925

REACTIONS (5)
  - Swelling face [Recovering/Resolving]
  - Blood triglycerides increased [Not Recovered/Not Resolved]
  - Wrong technique in product usage process [Unknown]
  - Blood cholesterol increased [Not Recovered/Not Resolved]
  - Thyroid hormones increased [Not Recovered/Not Resolved]

NARRATIVE: CASE EVENT DATE: 20200920
